FAERS Safety Report 21243149 (Version 4)
Quarter: 2022Q4

REPORT INFORMATION
  Report Type: Spontaneous
  Country: CA (occurrence: CA)
  Receive Date: 20220823
  Receipt Date: 20221219
  Transmission Date: 20230112
  Serious: Yes (Other)
  Sender: FDA-Public Use
  Company Number: CA-PFIZER INC-202201067151

PATIENT
  Age: 64 Year
  Sex: Female
  Weight: 87 kg

DRUGS (6)
  1. RUXIENCE [Suspect]
     Active Substance: RITUXIMAB-PVVR
     Indication: Granulomatosis with polyangiitis
     Dosage: 1 DF
     Route: 042
     Dates: start: 20220318, end: 20220405
  2. RUXIENCE [Suspect]
     Active Substance: RITUXIMAB-PVVR
     Dosage: 500 MG
     Route: 042
     Dates: start: 20221212
  3. FUROSEMIDE [Concomitant]
     Active Substance: FUROSEMIDE
     Dosage: UNK
  4. METOPROLOL [Concomitant]
     Active Substance: METOPROLOL
     Dosage: UNK
  5. PANTOPRAZOLE [Concomitant]
     Active Substance: PANTOPRAZOLE
     Dosage: UNK
  6. ROSUVASTATIN [Concomitant]
     Active Substance: ROSUVASTATIN
     Dosage: UNK

REACTIONS (6)
  - Dialysis [Unknown]
  - Off label use [Unknown]
  - Myalgia [Not Recovered/Not Resolved]
  - Mobility decreased [Recovering/Resolving]
  - CD19 expression decreased [Not Recovered/Not Resolved]
  - Weight increased [Unknown]

NARRATIVE: CASE EVENT DATE: 20220101
